FAERS Safety Report 9439355 (Version 3)
Quarter: 2013Q4

REPORT INFORMATION
  Report Type: Spontaneous
  Country: CA (occurrence: CA)
  Receive Date: 20130805
  Receipt Date: 20131003
  Transmission Date: 20140711
  Serious: Yes (Other)
  Sender: FDA-Public Use
  Company Number: CA-AMGEN-CANSP2013053927

PATIENT
  Age: 73 Year
  Sex: Male

DRUGS (4)
  1. ENBREL [Suspect]
     Indication: PSORIASIS
     Dosage: 50 MG, QWK
     Route: 058
  2. ENBREL [Suspect]
     Indication: PSORIATIC ARTHROPATHY
  3. VITAMIN B12                        /00056201/ [Concomitant]
     Dosage: 1000 MUG, QD
     Route: 060
  4. DYAZIDE [Concomitant]
     Dosage: 50/25 MG, UNK

REACTIONS (1)
  - Pneumonia [Recovered/Resolved]
